FAERS Safety Report 10600246 (Version 14)
Quarter: 2019Q2

REPORT INFORMATION
  Report Type: Spontaneous
  Country: US (occurrence: US)
  Receive Date: 20141122
  Receipt Date: 20190501
  Transmission Date: 20190711
  Serious: Yes (Hospitalization, Other)
  Sender: FDA-Public Use
  Company Number: US-DSJP-DSU-2014-120407

PATIENT

DRUGS (11)
  1. BENICAR [Suspect]
     Active Substance: OLMESARTAN MEDOXOMIL
     Indication: HYPERTENSION
     Dosage: 20 MG, PRN
     Dates: end: 201206
  2. BENICAR [Suspect]
     Active Substance: OLMESARTAN MEDOXOMIL
     Dosage: 20 MG, QD
     Route: 048
     Dates: start: 20070522, end: 201211
  3. BENICAR HCT [Suspect]
     Active Substance: HYDROCHLOROTHIAZIDE\OLMESARTAN MEDOXOMIL
     Indication: HYPERTENSION
     Dosage: 40/12.5 MG, UNK
     Route: 048
     Dates: start: 20070522, end: 201211
  4. BENICAR [Suspect]
     Active Substance: OLMESARTAN MEDOXOMIL
     Dosage: 40 MG, UNK
     Dates: start: 20070522, end: 201211
  5. GLUCOSAMINE [Concomitant]
     Active Substance: GLUCOSAMINE
     Indication: PRODUCT USED FOR UNKNOWN INDICATION
     Dosage: UNK
  6. COUMADIN [Concomitant]
     Active Substance: WARFARIN SODIUM
     Indication: PRODUCT USED FOR UNKNOWN INDICATION
     Dosage: 1 TABLET, BID
     Route: 048
     Dates: start: 201211
  7. BENICAR [Suspect]
     Active Substance: OLMESARTAN MEDOXOMIL
     Dosage: 40 MG, QD
     Route: 048
     Dates: start: 2012
  8. BENICAR [Suspect]
     Active Substance: OLMESARTAN MEDOXOMIL
     Dosage: 40 MG, PRN
     Route: 048
     Dates: start: 201209
  9. LOPRESSOR [Concomitant]
     Active Substance: METOPROLOL TARTRATE
     Dosage: 50 MG, UNK
     Route: 048
     Dates: start: 20130104
  10. SPIRONOLACTONE. [Concomitant]
     Active Substance: SPIRONOLACTONE
     Indication: PRODUCT USED FOR UNKNOWN INDICATION
     Dosage: 25 MG, QD
     Route: 048
     Dates: start: 20121231
  11. LOPRESSOR [Concomitant]
     Active Substance: METOPROLOL TARTRATE
     Indication: PRODUCT USED FOR UNKNOWN INDICATION
     Dosage: 75 MG, BID
     Route: 048
     Dates: start: 20121130

REACTIONS (24)
  - Atrial fibrillation [Recovering/Resolving]
  - Gastrooesophageal reflux disease [Unknown]
  - Intestinal perforation [Unknown]
  - Sprue-like enteropathy [Recovered/Resolved]
  - Diverticulum [Unknown]
  - Pulmonary embolism [Unknown]
  - Suicidal ideation [Recovered/Resolved]
  - Ascites [Unknown]
  - Coeliac disease [Recovering/Resolving]
  - Enteritis [Unknown]
  - Hypotension [Unknown]
  - Short-bowel syndrome [Unknown]
  - Bacterial test positive [Unknown]
  - Ileus paralytic [Recovering/Resolving]
  - Large intestine polyp [Recovered/Resolved]
  - Hiatus hernia [Unknown]
  - Deep vein thrombosis [Unknown]
  - Rectal haemorrhage [Not Recovered/Not Resolved]
  - Irritable bowel syndrome [Unknown]
  - Enteritis [Recovered/Resolved]
  - Generalised oedema [Unknown]
  - Inflammatory bowel disease [Unknown]
  - Impaired gastric emptying [Unknown]
  - Incorrect dose administered [Unknown]

NARRATIVE: CASE EVENT DATE: 20110719
